FAERS Safety Report 21451895 (Version 2)
Quarter: 2022Q4

REPORT INFORMATION
  Report Type: Report from Study
  Country: CN (occurrence: CN)
  Receive Date: 20221013
  Receipt Date: 20221021
  Transmission Date: 20230112
  Serious: Yes (Hospitalization)
  Sender: FDA-Public Use
  Company Number: CN-ADC THERAPEUTICS-ADC-2022-000216

PATIENT
  Age: 26 Year
  Sex: Male

DRUGS (4)
  1. LONCASTUXIMAB TESIRINE [Suspect]
     Active Substance: LONCASTUXIMAB TESIRINE
     Indication: Diffuse large B-cell lymphoma refractory
     Dosage: UNK UNK, Q3WK
     Route: 042
     Dates: start: 20211224, end: 20220209
  2. LONCASTUXIMAB TESIRINE [Suspect]
     Active Substance: LONCASTUXIMAB TESIRINE
     Dosage: UNK UNK, Q3WK
     Route: 042
     Dates: start: 20220210, end: 20220719
  3. LONCASTUXIMAB TESIRINE [Suspect]
     Active Substance: LONCASTUXIMAB TESIRINE
     Dosage: 75 MICROGRAM/KILOGRAM, Q3WK
     Route: 042
     Dates: start: 20220720, end: 20220831
  4. IBUPROFEN [Concomitant]
     Active Substance: IBUPROFEN
     Indication: Pyrexia
     Dosage: 10 MG, QD
     Route: 048
     Dates: start: 20020926, end: 20220926

REACTIONS (1)
  - Neutrophil count decreased [Recovered/Resolved]

NARRATIVE: CASE EVENT DATE: 20220927
